FAERS Safety Report 7405458-1 (Version None)
Quarter: 2011Q2

REPORT INFORMATION
  Report Type: 
  Country: None (occurrence: None)
  Receive Date: 20110411
  Receipt Date: 20110330
  Transmission Date: 20111010
  Serious: Yes (Hospitalization, Other)
  Sender: FDA-Public Use
  Company Number: US-AMGEN-USASP2011017018

PATIENT
  Age: 55 Year
  Sex: Male

DRUGS (1)
  1. EPOGEN [Suspect]
     Indication: RENAL FAILURE CHRONIC
     Dosage: UNK
     Dates: start: 20090101

REACTIONS (3)
  - ALTERED STATE OF CONSCIOUSNESS [None]
  - PANCYTOPENIA [None]
  - OEDEMA PERIPHERAL [None]
